FAERS Safety Report 4333047-4 (Version None)
Quarter: 2004Q2

REPORT INFORMATION
  Report Type: 
  Country: None (occurrence: None)
  Receive Date: 20040405
  Receipt Date: 20040405
  Transmission Date: 20050107
  Serious: Yes (Hospitalization)
  Sender: FDA-Public Use
  Company Number: None

PATIENT
  Age: 70 Year
  Sex: Female
  Weight: 78.9259 kg

DRUGS (4)
  1. CARBOPLATIN [Suspect]
     Indication: OVARIAN CANCER
     Dosage: AUC 6 Q 3 WKS
     Dates: start: 20040301
  2. CARBOPLATIN [Suspect]
     Indication: RECURRENT CANCER
     Dosage: AUC 6 Q 3 WKS
     Dates: start: 20040301
  3. TAXOTERE [Suspect]
     Indication: OVARIAN CANCER
     Dosage: 80 MG/M2 Q 3 WKS
     Dates: start: 20040301
  4. TAXOTERE [Suspect]
     Indication: RECURRENT CANCER
     Dosage: 80 MG/M2 Q 3 WKS
     Dates: start: 20040301

REACTIONS (5)
  - FATIGUE [None]
  - GASTROINTESTINAL DISORDER [None]
  - NEUTROPHIL COUNT DECREASED [None]
  - ORAL CANDIDIASIS [None]
  - PYREXIA [None]
